FAERS Safety Report 21395124 (Version 6)
Quarter: 2023Q1

REPORT INFORMATION
  Report Type: Report from Study
  Country: US (occurrence: US)
  Receive Date: 20220930
  Receipt Date: 20230317
  Transmission Date: 20230418
  Serious: Yes (Other)
  Sender: FDA-Public Use
  Company Number: US-ABBVIE-22K-163-4512048-00

PATIENT
  Age: 72 Year
  Sex: Male

DRUGS (4)
  1. IMBRUVICA [Suspect]
     Active Substance: IBRUTINIB
     Indication: Chronic lymphocytic leukaemia
     Dosage: TIME INTERVAL: 0.33333333 DAYS: FROM STRENGTH- 420MG
     Route: 048
     Dates: start: 201707, end: 201707
  2. IMBRUVICA [Suspect]
     Active Substance: IBRUTINIB
     Indication: Chronic lymphocytic leukaemia
     Dosage: FROM STRENGTH- 420MG
     Route: 048
     Dates: start: 201707
  3. IMBRUVICA [Suspect]
     Active Substance: IBRUTINIB
     Indication: Chronic lymphocytic leukaemia
     Dosage: FROM STRENGTH- 420MG
     Route: 048
  4. IMBRUVICA [Suspect]
     Active Substance: IBRUTINIB
     Indication: Chronic lymphocytic leukaemia
     Dosage: TIME INTERVAL: 0.33333333 DAYS
     Route: 048
     Dates: start: 20190101

REACTIONS (16)
  - Deafness unilateral [Not Recovered/Not Resolved]
  - Infection [Not Recovered/Not Resolved]
  - Haemorrhage [Not Recovered/Not Resolved]
  - Platelet count decreased [Not Recovered/Not Resolved]
  - Blood immunoglobulin M decreased [Unknown]
  - Contusion [Not Recovered/Not Resolved]
  - Immunodeficiency [Unknown]
  - Streptococcal infection [Not Recovered/Not Resolved]
  - Increased tendency to bruise [Unknown]
  - Neuropathy peripheral [Not Recovered/Not Resolved]
  - Dyspepsia [Unknown]
  - Conjunctivitis [Unknown]
  - Platelet count abnormal [Not Recovered/Not Resolved]
  - Blood immunoglobulin G decreased [Unknown]
  - Staphylococcal infection [Not Recovered/Not Resolved]
  - Upper respiratory tract infection [Not Recovered/Not Resolved]

NARRATIVE: CASE EVENT DATE: 20220717
